FAERS Safety Report 13345031 (Version 1)
Quarter: 2017Q1

REPORT INFORMATION
  Report Type: Spontaneous
  Country: US (occurrence: US)
  Receive Date: 20170316
  Receipt Date: 20170316
  Transmission Date: 20170428
  Serious: No
  Sender: FDA-Public Use
  Company Number: None

PATIENT
  Age: 65 Year
  Sex: Female
  Weight: 53.57 kg

DRUGS (1)
  1. PAMELOR [Suspect]
     Active Substance: NORTRIPTYLINE HYDROCHLORIDE
     Indication: NERVE INJURY
     Dates: start: 201609, end: 201702

REACTIONS (2)
  - Condition aggravated [None]
  - Product substitution issue [None]

NARRATIVE: CASE EVENT DATE: 201609
